FAERS Safety Report 25989778 (Version 2)
Quarter: 2025Q4

REPORT INFORMATION
  Report Type: Spontaneous
  Country: US (occurrence: US)
  Receive Date: 20251103
  Receipt Date: 20251229
  Transmission Date: 20260117
  Serious: Yes (Hospitalization)
  Sender: ALEXION PHARMACEUTICALS
  Company Number: US-AstraZeneca-CH-00981486A

PATIENT
  Age: 84 Year
  Sex: Male

DRUGS (1)
  1. ULTOMIRIS [Suspect]
     Active Substance: RAVULIZUMAB-CWVZ
     Indication: Myasthenia gravis
     Dosage: UNK
     Route: 065

REACTIONS (7)
  - Bladder cancer recurrent [Unknown]
  - Pyrexia [Unknown]
  - Device related infection [Unknown]
  - Nasopharyngitis [Unknown]
  - Eyelid infection [Unknown]
  - Headache [Unknown]
  - Photophobia [Unknown]
